FAERS Safety Report 7472952-7 (Version None)
Quarter: 2011Q2

REPORT INFORMATION
  Report Type: 
  Country: None (occurrence: None)
  Receive Date: 20110503
  Receipt Date: 20110418
  Transmission Date: 20111010
  Serious: Yes (Hospitalization, Other)
  Sender: FDA-Public Use
  Company Number: AUR-APL-2011-01278

PATIENT
  Age: 65 Year
  Sex: Male

DRUGS (4)
  1. BLINDED THERAPY (SAXAGLIPTIN/PLACEBO) [Suspect]
     Indication: TYPE 2 DIABETES MELLITUS
     Dates: start: 20100915
  2. CARVEDILOL [Suspect]
     Indication: HYPERTENSION
  3. SPIRONOLACTONE AND HYDROCHLOROTHIAZIDE [Suspect]
     Indication: HYPERTENSION
  4. METFORMIN HCL [Suspect]
     Indication: TYPE 2 DIABETES MELLITUS

REACTIONS (1)
  - RENAL FAILURE [None]
